FAERS Safety Report 14496698 (Version 1)
Quarter: 2018Q1

REPORT INFORMATION
  Report Type: Spontaneous
  Country: US (occurrence: US)
  Receive Date: 20180206
  Receipt Date: 20180206
  Transmission Date: 20180509
  Serious: Yes (Disabling)
  Sender: FDA-Public Use
  Company Number: None

PATIENT
  Age: 68 Year
  Sex: Female
  Weight: 61.24 kg

DRUGS (7)
  1. AMITRIPTYLINE [Suspect]
     Active Substance: AMITRIPTYLINE
     Indication: MIGRAINE
     Dosage: DATE PERSON STOPPED - NEVER I JUST SWITCHED VENDORS
     Route: 048
     Dates: start: 1980
  2. AMITRIPTYLINE [Suspect]
     Active Substance: AMITRIPTYLINE
     Indication: VULVOVAGINAL PAIN
     Dosage: DATE PERSON STOPPED - NEVER I JUST SWITCHED VENDORS
     Route: 048
     Dates: start: 1980
  3. AMITRIPTYLINE [Suspect]
     Active Substance: AMITRIPTYLINE
     Indication: PAIN
     Dosage: DATE PERSON STOPPED - NEVER I JUST SWITCHED VENDORS
     Route: 048
     Dates: start: 1980
  4. AMITRIPTYLINE [Suspect]
     Active Substance: AMITRIPTYLINE
     Indication: DEPRESSION
     Dosage: DATE PERSON STOPPED - NEVER I JUST SWITCHED VENDORS
     Route: 048
     Dates: start: 1980
  5. AMITRIPTYLINE [Suspect]
     Active Substance: AMITRIPTYLINE
     Indication: FIBROMYALGIA
     Dosage: DATE PERSON STOPPED - NEVER I JUST SWITCHED VENDORS
     Route: 048
     Dates: start: 1980
  6. AMITRIPTYLINE [Suspect]
     Active Substance: AMITRIPTYLINE
     Indication: ANXIETY
     Dosage: DATE PERSON STOPPED - NEVER I JUST SWITCHED VENDORS
     Route: 048
     Dates: start: 1980
  7. DRUE PACIFICA ELITE COMPRESSOR/NEBULIZER WITH ALBUTEROL [Concomitant]

REACTIONS (10)
  - Cerebral disorder [None]
  - Disturbance in attention [None]
  - Product substitution issue [None]
  - Insomnia [None]
  - Feeling abnormal [None]
  - Body temperature increased [None]
  - Judgement impaired [None]
  - Fatigue [None]
  - Asthenia [None]
  - Loss of personal independence in daily activities [None]

NARRATIVE: CASE EVENT DATE: 20170419
